FAERS Safety Report 8148067 (Version 7)
Quarter: 2013Q1

REPORT INFORMATION
  Report Type: Spontaneous
  Country: US (occurrence: US)
  Receive Date: 20110922
  Receipt Date: 20130130
  Transmission Date: 20140127
  Serious: Yes (Other)
  Sender: FDA-Public Use
  Company Number: US-JNJFOC-20110907049

PATIENT
  Age: 65 None
  Sex: Male

DRUGS (3)
  1. LEVAQUIN [Suspect]
     Indication: PROSTATITIS
     Route: 048
     Dates: start: 201008, end: 20100818
  2. CIPROFLOXACIN [Suspect]
     Indication: INFECTION
     Route: 065
  3. PREDNISONE [Suspect]
     Indication: PRODUCT USED FOR UNKNOWN INDICATION
     Route: 065

REACTIONS (9)
  - Meniscus injury [Unknown]
  - Tendon rupture [Unknown]
  - Tendon rupture [Unknown]
  - Rotator cuff syndrome [Recovering/Resolving]
  - Tenosynovitis [Unknown]
  - Plantar fasciitis [Unknown]
  - Tendon disorder [Unknown]
  - Tendonitis [Unknown]
  - Muscular weakness [Unknown]
